FAERS Safety Report 11359022 (Version 1)
Quarter: 2015Q3

REPORT INFORMATION
  Report Type: Spontaneous
  Country: US (occurrence: None)
  Receive Date: 20150807
  Receipt Date: 20150807
  Transmission Date: 20151125
  Serious: Yes (Other)
  Sender: FDA-Public Use
  Company Number: None

PATIENT
  Age: 70 Year
  Sex: Female
  Weight: 47.63 kg

DRUGS (13)
  1. BREO ELLIPTA [Suspect]
     Active Substance: FLUTICASONE FUROATE\VILANTEROL TRIFENATATE
     Indication: ASTHMA
     Dosage: ONE ONCE DAILY INHALATION
     Route: 055
     Dates: start: 20150627, end: 20150803
  2. MULTI VITAMIN IRON FREE VITAMIN C [Concomitant]
  3. VITAMIN A [Concomitant]
     Active Substance: VITAMIN A
  4. BENADRYL [Concomitant]
     Active Substance: DIPHENHYDRAMINE HYDROCHLORIDE
  5. VITAMIN E [Concomitant]
     Active Substance: .ALPHA.-TOCOPHEROL
  6. CALCIUM CARBONATE/TUMS BETA CAROTENE N-ACETYL CYSTEINE (NAC) [Concomitant]
  7. OMEGA 3 FISH OIL CONCENTRATE [Concomitant]
  8. CO-Q10 [Concomitant]
  9. CALCIUM CITRATE WITH NAGNESIUM + D2 [Concomitant]
  10. BREO ELLIPTA [Suspect]
     Active Substance: FLUTICASONE FUROATE\VILANTEROL TRIFENATATE
     Indication: BRONCHITIS CHRONIC
     Dosage: ONE ONCE DAILY INHALATION
     Route: 055
     Dates: start: 20150627, end: 20150803
  11. GLUCOSAMINE SULFATE [Concomitant]
     Active Substance: GLUCOSAMINE SULFATE
  12. VITAMIN D [Concomitant]
     Active Substance: CHOLECALCIFEROL
  13. CLARITIN [Concomitant]
     Active Substance: LORATADINE

REACTIONS (2)
  - Pulmonary pain [None]
  - Lung infection [None]

NARRATIVE: CASE EVENT DATE: 20150803
